FAERS Safety Report 6533073-0 (Version None)
Quarter: 2010Q1

REPORT INFORMATION
  Report Type: 
  Country: None (occurrence: None)
  Receive Date: 20100111
  Receipt Date: 20100104
  Transmission Date: 20100710
  Serious: Yes (Hospitalization)
  Sender: FDA-Public Use
  Company Number: CN-BRISTOL-MYERS SQUIBB COMPANY-14894521

PATIENT
  Age: 47 Year
  Sex: Female

DRUGS (1)
  1. WARFARIN SODIUM [Suspect]
     Dosage: FORMULATION-TABLET
     Route: 048

REACTIONS (3)
  - INTRA-ABDOMINAL HAEMORRHAGE [None]
  - OVARIAN DISORDER [None]
  - OVERDOSE [None]
